FAERS Safety Report 7863771-8 (Version None)
Quarter: 2011Q4

REPORT INFORMATION
  Report Type: 
  Country: None (occurrence: None)
  Receive Date: 20111027
  Receipt Date: 20111019
  Transmission Date: 20120403
  Serious: Yes (Hospitalization)
  Sender: FDA-Public Use
  Company Number: US-AMGEN-USASP2011054167

PATIENT
  Age: 26 Year
  Sex: Female

DRUGS (1)
  1. ENBREL [Suspect]
     Indication: PSORIASIS
     Dosage: 50 MG, QWK
     Dates: start: 20040614

REACTIONS (8)
  - PANCREATIC STENT PLACEMENT [None]
  - PSORIASIS [None]
  - INJECTION SITE PAIN [None]
  - PNEUMONIA [None]
  - STENT PLACEMENT [None]
  - GALLBLADDER DISORDER [None]
  - HEADACHE [None]
  - POST PROCEDURAL INFECTION [None]
